FAERS Safety Report 10075524 (Version 2)
Quarter: 2014Q2

REPORT INFORMATION
  Report Type: Spontaneous
  Country: US (occurrence: US)
  Receive Date: 20140414
  Receipt Date: 20140630
  Transmission Date: 20141212
  Serious: No
  Sender: FDA-Public Use
  Company Number: US-JNJFOC-20140404509

PATIENT
  Age: 51 Year
  Sex: Female
  Weight: 108.86 kg

DRUGS (12)
  1. INVEGA SUSTENNA [Suspect]
     Indication: SCHIZOPHRENIA, PARANOID TYPE
     Route: 030
     Dates: start: 20140403
  2. HYDROCODONE ACETAMINOPHEN [Concomitant]
     Route: 048
     Dates: start: 20140228
  3. ALPRAZOLAM [Concomitant]
     Route: 048
     Dates: start: 20131121
  4. BUSPIRONE [Concomitant]
     Route: 048
     Dates: start: 20140324
  5. DOXEPIN [Concomitant]
     Route: 048
     Dates: start: 20131225
  6. INVEGA [Concomitant]
     Route: 048
     Dates: start: 20140410
  7. INVEGA SUSTENA [Concomitant]
     Route: 030
     Dates: start: 20140410
  8. LAMOTRIGINE [Concomitant]
     Route: 048
     Dates: start: 20130324
  9. LAMOTRIGINE [Concomitant]
     Route: 048
     Dates: start: 20140324
  10. LISINOPRIL [Concomitant]
     Route: 048
     Dates: start: 20120823
  11. LYRICA [Concomitant]
     Route: 048
     Dates: start: 20140211
  12. METOPROLOL [Concomitant]
     Route: 048
     Dates: start: 20130208

REACTIONS (1)
  - Expired product administered [Not Recovered/Not Resolved]
